FAERS Safety Report 10057915 (Version 3)
Quarter: 2014Q3

REPORT INFORMATION
  Report Type: Spontaneous
  Country: US (occurrence: US)
  Receive Date: 20140404
  Receipt Date: 20140702
  Transmission Date: 20150326
  Serious: Yes (Other)
  Sender: FDA-Public Use
  Company Number: US-AMGEN-USASP2014022598

PATIENT
  Age: 68 Year
  Sex: Female
  Weight: 102.99 kg

DRUGS (6)
  1. ASPIRIN LOW [Concomitant]
     Dosage: 8 MG, QD
     Route: 048
  2. LEVOTHYROXINE                      /00068002/ [Concomitant]
     Indication: HYPOTHYROIDISM
     Dosage: 50 MUG, QD
  3. CALCIUM [Concomitant]
     Active Substance: CALCIUM
  4. VITAMIN D                          /00107901/ [Concomitant]
     Active Substance: ERGOCALCIFEROL
     Dosage: 2000 UNK, QD
  5. SIMVASTATIN. [Concomitant]
     Active Substance: SIMVASTATIN
     Indication: HYPERLIPIDAEMIA
     Dosage: 40 MG, QD
     Route: 048
  6. PROLIA [Suspect]
     Active Substance: DENOSUMAB
     Indication: OSTEOPOROSIS POSTMENOPAUSAL
     Dosage: 60 UNK, Q6MO
     Route: 058
     Dates: start: 20140114

REACTIONS (11)
  - Depression [Unknown]
  - Aortic occlusion [Unknown]
  - Back pain [Not Recovered/Not Resolved]
  - Fatigue [Unknown]
  - Osteonecrosis of jaw [Unknown]
  - Blindness unilateral [Unknown]
  - Eye haemorrhage [Unknown]
  - Loose tooth [Unknown]
  - Gait disturbance [Unknown]
  - Medical diet [Unknown]
  - Mobility decreased [Unknown]
